FAERS Safety Report 6119292-6 (Version None)
Quarter: 2009Q1

REPORT INFORMATION
  Report Type: 
  Country: None (occurrence: None)
  Receive Date: 20090316
  Receipt Date: 20090304
  Transmission Date: 20090719
  Serious: Yes (Other)
  Sender: FDA-Public Use
  Company Number: PHEH2009US02349

PATIENT
  Sex: Female

DRUGS (1)
  1. RECLAST [Suspect]
     Dosage: UNK
     Dates: start: 20080101

REACTIONS (4)
  - ENDODONTIC PROCEDURE [None]
  - ORAL PAIN [None]
  - SOFT TISSUE NECROSIS [None]
  - TOOTH DISORDER [None]
